FAERS Safety Report 5452658-6 (Version None)
Quarter: 2007Q3

REPORT INFORMATION
  Report Type: 
  Country: None (occurrence: None)
  Receive Date: 20070914
  Receipt Date: 20070907
  Transmission Date: 20080115
  Serious: Yes (Other)
  Sender: FDA-Public Use
  Company Number: US-ALLERGAN-0704241US

PATIENT
  Sex: Female

DRUGS (1)
  1. BOTOX [Suspect]
     Indication: FACIAL SPASM
     Dosage: 27.5 UNITS, SINGLE
     Route: 030
     Dates: start: 20070413, end: 20070413

REACTIONS (11)
  - DRUG INEFFECTIVE [None]
  - EYELID OEDEMA [None]
  - FACIAL PAIN [None]
  - FACIAL PARESIS [None]
  - HAEMATOMA [None]
  - INJECTION SITE PAIN [None]
  - INSOMNIA [None]
  - MEDICATION ERROR [None]
  - MUSCLE INJURY [None]
  - VISION BLURRED [None]
  - WRONG TECHNIQUE IN DRUG USAGE PROCESS [None]
